FAERS Safety Report 4395784-5 (Version None)
Quarter: 2004Q3

REPORT INFORMATION
  Report Type: 
  Country: None (occurrence: None)
  Receive Date: 20040709
  Receipt Date: 20040626
  Transmission Date: 20050211
  Serious: Yes (Hospitalization)
  Sender: FDA-Public Use
  Company Number: 2004043350

PATIENT
  Age: 18 Month
  Sex: Female

DRUGS (1)
  1. VISINE II EYE DROPS [Suspect]
     Indication: ACCIDENTAL EXPOSURE
     Dosage: 3/4 OF BOTTLE, ORAL
     Route: 048
     Dates: start: 20040622, end: 20040622

REACTIONS (8)
  - ACCIDENTAL EXPOSURE [None]
  - COMA [None]
  - HEADACHE [None]
  - LOSS OF CONSCIOUSNESS [None]
  - MEDICATION ERROR [None]
  - RASH [None]
  - RESPIRATORY ARREST [None]
  - RESUSCITATION [None]
